FAERS Safety Report 6756613-5 (Version None)
Quarter: 2010Q2

REPORT INFORMATION
  Report Type: 
  Country: None (occurrence: None)
  Receive Date: 20100604
  Receipt Date: 20100524
  Transmission Date: 20101027
  Serious: Yes (Other)
  Sender: FDA-Public Use
  Company Number: US-JNJCH-2010013230

PATIENT
  Sex: Male

DRUGS (1)
  1. LISTERINE TOTAL CARE ANTICAVITY MOUTHWASH [Suspect]
     Indication: DENTAL DISORDER PROPHYLAXIS
     Route: 048

REACTIONS (3)
  - APPLICATION SITE PAIN [None]
  - DRUG INEFFECTIVE [None]
  - TOOTH INJURY [None]
